FAERS Safety Report 9753095 (Version 1)
Quarter: 2013Q4

REPORT INFORMATION
  Report Type: Spontaneous
  Country: US (occurrence: US)
  Receive Date: 20131213
  Receipt Date: 20131213
  Transmission Date: 20140711
  Serious: No
  Sender: FDA-Public Use
  Company Number: US-GILEAD-2010-0026280

PATIENT
  Sex: Male

DRUGS (8)
  1. LETAIRIS [Suspect]
     Indication: PULMONARY ARTERIAL HYPERTENSION
     Route: 048
  2. ALBUTEROL [Concomitant]
  3. BABY ASPIRIN [Concomitant]
  4. PROTONIX [Concomitant]
  5. POTASSIUM [Concomitant]
  6. LASIX [Concomitant]
  7. WARFARIN SODIUM [Concomitant]
  8. REMODULIN [Concomitant]

REACTIONS (1)
  - Unevaluable event [Recovered/Resolved]
